FAERS Safety Report 12798416 (Version 2)
Quarter: 2016Q4

REPORT INFORMATION
  Report Type: Spontaneous
  Country: DE (occurrence: DE)
  Receive Date: 20160930
  Receipt Date: 20161104
  Transmission Date: 20170207
  Serious: Yes (Other)
  Sender: FDA-Public Use
  Company Number: DE-BRISTOL-MYERS SQUIBB COMPANY-BMS-2016-080290

PATIENT
  Age: 56 Year
  Sex: Female
  Weight: 82 kg

DRUGS (1)
  1. ELIQUIS [Suspect]
     Active Substance: APIXABAN
     Indication: CEREBROVASCULAR ACCIDENT PROPHYLAXIS
     Dosage: 5 MG, BID
     Route: 065
     Dates: start: 201604, end: 201610

REACTIONS (3)
  - Suicidal ideation [Unknown]
  - Depression [Recovered/Resolved]
  - Anxiety disorder [Recovered/Resolved]

NARRATIVE: CASE EVENT DATE: 201604
